FAERS Safety Report 25869528 (Version 3)
Quarter: 2025Q4

REPORT INFORMATION
  Report Type: Spontaneous
  Country: US (occurrence: US)
  Receive Date: 20251001
  Receipt Date: 20251016
  Transmission Date: 20260118
  Serious: No
  Sender: VERTEX
  Company Number: US-VERTEX PHARMACEUTICALS-2025-015766

PATIENT
  Age: 41 Year
  Sex: Female

DRUGS (1)
  1. TRIKAFTA [Suspect]
     Active Substance: ELEXACAFTOR\IVACAFTOR\TEZACAFTOR
     Indication: Cystic fibrosis
     Dosage: UNKNOWN DOSAGE REGIMEN
     Route: 048

REACTIONS (10)
  - Hypothyroidism [Unknown]
  - Weight increased [Unknown]
  - Dry skin [Unknown]
  - Lower respiratory tract infection [Not Recovered/Not Resolved]
  - Illness [Unknown]
  - Memory impairment [Unknown]
  - Pseudomonas test positive [Not Recovered/Not Resolved]
  - Chest discomfort [Unknown]
  - Feeling cold [Unknown]
  - Nasopharyngitis [Recovered/Resolved]

NARRATIVE: CASE EVENT DATE: 20250501
